FAERS Safety Report 4410667-X (Version None)
Quarter: 2004Q3

REPORT INFORMATION
  Report Type: 
  Country: None (occurrence: None)
  Receive Date: 20040729
  Receipt Date: 20040607
  Transmission Date: 20050211
  Serious: Yes (Other)
  Sender: FDA-Public Use
  Company Number: PHBS2004BR07536

PATIENT
  Age: 60 Year
  Sex: Female

DRUGS (2)
  1. STARFORM [Suspect]
     Indication: DIABETES MELLITUS
     Dosage: NATE 120 / MET 850 MG/DAY
     Route: 048
     Dates: start: 20040513, end: 20040606
  2. LOSARTAN POTASSIUM [Concomitant]
     Indication: HYPERTENSION
     Dosage: 25 MG, BID
     Route: 048

REACTIONS (4)
  - FAECES DISCOLOURED [None]
  - GASTRIC ULCER [None]
  - GASTRITIS [None]
  - OESOPHAGITIS [None]
